FAERS Safety Report 5908523-0 (Version None)
Quarter: 2008Q4

REPORT INFORMATION
  Report Type: 
  Country: None (occurrence: None)
  Receive Date: 20081006
  Receipt Date: 20080801
  Transmission Date: 20090506
  Serious: No
  Sender: FDA-Public Use
  Company Number: US-BAYER-200831681NA

PATIENT
  Age: 53 Year
  Sex: Female
  Weight: 65 kg

DRUGS (5)
  1. OCELLA [Suspect]
     Indication: VAGINAL HAEMORRHAGE
     Route: 048
     Dates: start: 20080701
  2. MULTI-VITAMINS [Concomitant]
  3. GLUCOSAMINE [Concomitant]
  4. VITAMIN E [Concomitant]
  5. HYCEL [Concomitant]

REACTIONS (3)
  - INSOMNIA [None]
  - MOOD SWINGS [None]
  - NO ADVERSE EVENT [None]
